FAERS Safety Report 9369958 (Version 1)
Quarter: 2013Q2

REPORT INFORMATION
  Report Type: Report from Study
  Country: FR (occurrence: FR)
  Receive Date: 20130626
  Receipt Date: 20130626
  Transmission Date: 20140414
  Serious: Yes (Death, Hospitalization)
  Sender: FDA-Public Use
  Company Number: FR-ELI_LILLY_AND_COMPANY-FR201306007392

PATIENT
  Age: 67 Year
  Sex: Male
  Weight: 57 kg

DRUGS (15)
  1. PEMETREXED [Suspect]
     Indication: NON-SMALL CELL LUNG CANCER
     Dosage: 785 MG, SINGLE
     Route: 042
     Dates: start: 20130121, end: 20130121
  2. TARCEVA [Suspect]
     Indication: NON-SMALL CELL LUNG CANCER
     Dosage: BLINDED, UNK
     Dates: start: 20121115, end: 20130109
  3. DEPAKINE [Concomitant]
  4. OXYCONTIN [Concomitant]
  5. OXYNORM [Concomitant]
  6. INEXIUM [Concomitant]
     Dosage: UNK
  7. ROCEPHINE [Concomitant]
     Dosage: UNK
     Dates: start: 20130129
  8. IXPRIM [Concomitant]
     Dosage: UNK
  9. SERESTA [Concomitant]
     Dosage: UNK
  10. ZANEXTRA [Concomitant]
     Dosage: UNK
  11. HELICIDINE [Concomitant]
     Dosage: UNK
  12. DOXYCYCLINE [Concomitant]
     Dosage: UNK
     Dates: start: 20121115, end: 20130122
  13. DEXERYL [Concomitant]
     Dosage: UNK
     Dates: start: 20121115, end: 20130122
  14. MORPHINE SULFATE [Concomitant]
     Dosage: UNK
     Dates: start: 20121212
  15. SOLUPRED [Concomitant]
     Dosage: UNK
     Dates: start: 20130110

REACTIONS (1)
  - Febrile bone marrow aplasia [Fatal]
